FAERS Safety Report 5846934-2 (Version None)
Quarter: 2008Q3

REPORT INFORMATION
  Report Type: 
  Country: None (occurrence: None)
  Receive Date: 20080815
  Receipt Date: 20080807
  Transmission Date: 20090109
  Serious: Yes (Hospitalization)
  Sender: FDA-Public Use
  Company Number: CZ-ABBOTT-08P-217-0469535-00

PATIENT
  Sex: Female

DRUGS (4)
  1. HUMIRA [Suspect]
     Indication: ANKYLOSING SPONDYLITIS
     Route: 058
     Dates: start: 20080220, end: 20080402
  2. HUMIRA [Suspect]
     Route: 058
     Dates: start: 20080611
  3. DICLOFENAC DIETHYLAMINE [Concomitant]
     Indication: ANKYLOSING SPONDYLITIS
  4. ATENOLOL [Concomitant]
     Indication: HYPERTENSION

REACTIONS (4)
  - BACK PAIN [None]
  - CALCULUS URETERIC [None]
  - DYSURIA [None]
  - HAEMATURIA [None]
